FAERS Safety Report 10303803 (Version 3)
Quarter: 2015Q3

REPORT INFORMATION
  Report Type: Spontaneous
  Country: US (occurrence: US)
  Receive Date: 20140714
  Receipt Date: 20150817
  Transmission Date: 20151125
  Serious: No
  Sender: FDA-Public Use
  Company Number: US-GILEAD-2013-0084052

PATIENT
  Age: 50 Year
  Sex: Female

DRUGS (5)
  1. LETAIRIS [Suspect]
     Active Substance: AMBRISENTAN
     Indication: PULMONARY HYPERTENSION
     Dosage: 10 MG, QD
     Dates: start: 20121128
  2. LETAIRIS [Suspect]
     Active Substance: AMBRISENTAN
     Indication: CREST SYNDROME
  3. VENTAVIS [Concomitant]
     Active Substance: ILOPROST
  4. LETAIRIS [Suspect]
     Active Substance: AMBRISENTAN
     Indication: SCLERODERMA
     Dosage: UNK
  5. REVATIO [Concomitant]
     Active Substance: SILDENAFIL CITRATE

REACTIONS (6)
  - Cough [Unknown]
  - Rhinitis [Unknown]
  - Influenza like illness [Not Recovered/Not Resolved]
  - Oedema [Unknown]
  - Flushing [Not Recovered/Not Resolved]
  - Headache [Recovered/Resolved]
